FAERS Safety Report 4869569-7 (Version None)
Quarter: 2005Q4

REPORT INFORMATION
  Report Type: 
  Country: None (occurrence: None)
  Receive Date: 20051227
  Receipt Date: 20051220
  Transmission Date: 20060501
  Serious: Yes (Death, Other)
  Sender: FDA-Public Use
  Company Number: TCI2002A02866

PATIENT
  Age: 64 Year
  Sex: Female

DRUGS (5)
  1. LANSOPRAZOLE [Suspect]
     Indication: HELICOBACTER INFECTION
     Dosage: 60 MG (30 MG, 2 IN 1 D)
     Route: 048
     Dates: start: 20020828, end: 20020828
  2. AMOXICILLIN TRIHYDRATE [Suspect]
     Indication: HELICOBACTER INFECTION
     Dosage: 500 MG (500 MG, 1 D)
     Route: 048
     Dates: start: 20020828, end: 20020828
  3. CLARITHROMYCIN [Suspect]
     Indication: HELICOBACTER INFECTION
     Dosage: 200 MG (200 MG, 1 D)
     Route: 048
     Dates: start: 20020828, end: 20020828
  4. RISUMIC (AMEZINIUM METILSULFATE) [Concomitant]
  5. LEVOTHYROXINE SODIUM [Concomitant]

REACTIONS (15)
  - BLOOD GLUCOSE DECREASED [None]
  - CARDIAC ARREST [None]
  - COMA [None]
  - DIALYSIS AMYLOIDOSIS [None]
  - DISSEMINATED INTRAVASCULAR COAGULATION [None]
  - DYSARTHRIA [None]
  - GASTRIC ULCER [None]
  - HYPOGLYCAEMIA [None]
  - HYPOTHYROIDISM [None]
  - MALNUTRITION [None]
  - PULMONARY CONGESTION [None]
  - RENAL FAILURE CHRONIC [None]
  - RESPIRATORY ARREST [None]
  - SCAR [None]
  - SOMNOLENCE [None]
